FAERS Safety Report 6684916-1 (Version None)
Quarter: 2010Q2

REPORT INFORMATION
  Report Type: 
  Country: None (occurrence: None)
  Receive Date: 20100416
  Receipt Date: 20100406
  Transmission Date: 20101027
  Serious: Yes (Other)
  Sender: FDA-Public Use
  Company Number: US-SANOFI-AVENTIS-2010SA010271

PATIENT
  Age: 72 Year
  Sex: Female
  Weight: 113.39 kg

DRUGS (2)
  1. LANTUS [Suspect]
     Dosage: 6AM-50 UNITS AND 6PM - 50 UNITS DOSE:50 UNIT(S)
     Route: 058
     Dates: start: 20010101
  2. SOLOSTAR [Suspect]
     Indication: TYPE 2 DIABETES MELLITUS
     Dates: start: 20010101

REACTIONS (3)
  - DIABETIC RETINOPATHY [None]
  - EYE HAEMORRHAGE [None]
  - VISUAL ACUITY REDUCED [None]
